FAERS Safety Report 5419957-5 (Version None)
Quarter: 2007Q3

REPORT INFORMATION
  Report Type: 
  Country: None (occurrence: None)
  Receive Date: 20070820
  Receipt Date: 20070808
  Transmission Date: 20080115
  Serious: Yes (Hospitalization)
  Sender: FDA-Public Use
  Company Number: GB-PFIZER INC-2007057626

PATIENT
  Age: 63 Year
  Sex: Male
  Weight: 83 kg

DRUGS (2)
  1. SUTENT [Suspect]
  2. PARACETAMOL [Concomitant]
     Route: 048

REACTIONS (1)
  - PERIANAL ABSCESS [None]
